FAERS Safety Report 13214135 (Version 2)
Quarter: 2017Q1

REPORT INFORMATION
  Report Type: Spontaneous
  Country: US (occurrence: US)
  Receive Date: 20170210
  Receipt Date: 20170310
  Transmission Date: 20170428
  Serious: Yes (Hospitalization)
  Sender: FDA-Public Use
  Company Number: US-VIFOR (INTERNATIONAL) INC.-VIT-2017-01182

PATIENT
  Age: 54 Year
  Sex: Male

DRUGS (4)
  1. VELTASSA [Suspect]
     Active Substance: PATIROMER
     Dates: start: 20170131
  2. VELTASSA [Suspect]
     Active Substance: PATIROMER
     Dates: start: 201702
  3. VELTASSA [Suspect]
     Active Substance: PATIROMER
     Indication: BLOOD POTASSIUM INCREASED
     Route: 048
     Dates: start: 201611
  4. VELTASSA [Suspect]
     Active Substance: PATIROMER

REACTIONS (5)
  - Blood potassium decreased [Unknown]
  - Blood potassium increased [Unknown]
  - Inappropriate schedule of drug administration [Unknown]
  - Blood pressure increased [Not Recovered/Not Resolved]
  - Medication error [Unknown]

NARRATIVE: CASE EVENT DATE: 201702
